FAERS Safety Report 8830458 (Version 3)
Quarter: 2012Q4

REPORT INFORMATION
  Report Type: 
  Country: US (occurrence: US)
  Receive Date: 20121009
  Receipt Date: 20121217
  Transmission Date: 20130627
  Serious: Yes (Hospitalization, Disabling, Other)
  Sender: FDA-Public Use
  Company Number: US-009507513-1205USA04593

PATIENT

DRUGS (3)
  1. FOSAMAX [Suspect]
     Indication: OSTEOPOROSIS
     Dosage: 10 mg, UNK
     Route: 048
     Dates: start: 199510, end: 2002
  2. FOSAMAX [Suspect]
     Dosage: 70 mg, UNK
     Route: 048
     Dates: start: 2002, end: 200712
  3. ALENDRONATE SODIUM [Suspect]
     Indication: OSTEOPOROSIS
     Dosage: 70 mg, UNK
     Route: 048
     Dates: start: 200801

REACTIONS (31)
  - Femur fracture [Unknown]
  - Open reduction of fracture [Unknown]
  - Femur fracture [Unknown]
  - Open reduction of fracture [Unknown]
  - Humerus fracture [Unknown]
  - Acetabulum fracture [Unknown]
  - Eyelid ptosis [Unknown]
  - Gingivectomy [Unknown]
  - Periodontal operation [Unknown]
  - Oral surgery [Unknown]
  - Tooth extraction [Unknown]
  - Vitamin D deficiency [Unknown]
  - Calcium deficiency [Unknown]
  - Inflammatory bowel disease [Unknown]
  - Hypertension [Unknown]
  - Blood cholesterol increased [Unknown]
  - Asthma [Unknown]
  - Adverse event [Unknown]
  - Fall [Unknown]
  - Chronic obstructive pulmonary disease [Unknown]
  - Dementia [Unknown]
  - Hypervitaminosis D [Unknown]
  - Cardiomegaly [Unknown]
  - Aortic arteriosclerosis [Unknown]
  - Compression fracture [Unknown]
  - Spinal osteoarthritis [Unknown]
  - Foot fracture [Unknown]
  - Generalised anxiety disorder [Unknown]
  - Back pain [Unknown]
  - Constipation [Unknown]
  - Pain in extremity [Unknown]
